FAERS Safety Report 10561646 (Version 1)
Quarter: 2014Q4

REPORT INFORMATION
  Report Type: Spontaneous
  Country: US (occurrence: US)
  Receive Date: 20141103
  Receipt Date: 20141103
  Transmission Date: 20150529
  Serious: No
  Sender: FDA-Public Use
  Company Number: US-PFIZER INC-2014302596

PATIENT
  Sex: Female

DRUGS (2)
  1. ZOLOFT [Suspect]
     Active Substance: SERTRALINE HYDROCHLORIDE
     Dosage: 150 MG, UNK
     Dates: start: 2014, end: 2014
  2. ZOLOFT [Suspect]
     Active Substance: SERTRALINE HYDROCHLORIDE
     Dosage: 200 MG, UNK
     Dates: start: 2014

REACTIONS (5)
  - Activities of daily living impaired [Unknown]
  - Stress [Unknown]
  - Anxiety disorder [Unknown]
  - Depression [Not Recovered/Not Resolved]
  - Feeling abnormal [Unknown]

NARRATIVE: CASE EVENT DATE: 2014
